FAERS Safety Report 8167923-1 (Version None)
Quarter: 2012Q1

REPORT INFORMATION
  Report Type: 
  Country: None (occurrence: None)
  Receive Date: 20120227
  Receipt Date: 20120221
  Transmission Date: 20120608
  Serious: Yes (Hospitalization)
  Sender: FDA-Public Use
  Company Number: US-GLAXOSMITHKLINE-A0915608A

PATIENT
  Age: 64 Year
  Sex: Male
  Weight: 95.2 kg

DRUGS (7)
  1. PROTONIX [Concomitant]
  2. METFORMIN HCL [Concomitant]
  3. AVANDIA [Suspect]
     Indication: DIABETES MELLITUS
     Dosage: 4MG PER DAY
     Route: 048
     Dates: start: 20020201, end: 20071201
  4. VYTORIN [Concomitant]
  5. ENALAPRIL MALEATE [Concomitant]
  6. INSULIN [Concomitant]
  7. GEMFIBROZIL [Concomitant]

REACTIONS (4)
  - CARDIOVASCULAR DISORDER [None]
  - CARDIAC DISORDER [None]
  - CORONARY ARTERY DISEASE [None]
  - CARDIAC FAILURE CONGESTIVE [None]
